FAERS Safety Report 5199842-7 (Version None)
Quarter: 2006Q4

REPORT INFORMATION
  Report Type: 
  Country: None (occurrence: None)
  Receive Date: 20061229
  Receipt Date: 20061218
  Transmission Date: 20070319
  Serious: Yes (Other)
  Sender: FDA-Public Use
  Company Number: GXKR2006BR08360

PATIENT
  Age: 21 Year
  Sex: Female
  Weight: 56 kg

DRUGS (1)
  1. CIMETINA (NGX) (CIMETIDINE) TABLET, 200MG [Suspect]
     Indication: ABDOMINAL PAIN
     Dosage: 2 TABLETS, ONCE/SINGLE, ORAL
     Route: 048
     Dates: start: 20061218, end: 20061218

REACTIONS (2)
  - DRUG EXPOSURE DURING PREGNANCY [None]
  - INTRA-UTERINE DEATH [None]
